FAERS Safety Report 6267805-6 (Version None)
Quarter: 2009Q3

REPORT INFORMATION
  Report Type: 
  Country: None (occurrence: None)
  Receive Date: 20090714
  Receipt Date: 20090630
  Transmission Date: 20100115
  Serious: Yes (Death)
  Sender: FDA-Public Use
  Company Number: GB-MYLANLABS-2009S1007286

PATIENT
  Age: 32 Year
  Sex: Female

DRUGS (6)
  1. MEBEVERINE [Suspect]
     Indication: DRUG USE FOR UNKNOWN INDICATION
  2. CHLORDIAZEPOXIDE [Suspect]
     Indication: DRUG USE FOR UNKNOWN INDICATION
  3. ETHANOL [Suspect]
     Indication: DRUG USE FOR UNKNOWN INDICATION
  4. FLUOXETINE HCL [Suspect]
     Indication: DRUG USE FOR UNKNOWN INDICATION
  5. PARACETAMOL [Suspect]
     Indication: DRUG USE FOR UNKNOWN INDICATION
  6. VALPROIC ACID [Suspect]
     Indication: DRUG USE FOR UNKNOWN INDICATION

REACTIONS (1)
  - DEATH [None]
